FAERS Safety Report 6108314-4 (Version None)
Quarter: 2009Q1

REPORT INFORMATION
  Report Type: 
  Country: None (occurrence: None)
  Receive Date: 20090309
  Receipt Date: 20090224
  Transmission Date: 20090719
  Serious: Yes (Hospitalization)
  Sender: FDA-Public Use
  Company Number: NL-ROCHE-611492

PATIENT
  Sex: Male

DRUGS (4)
  1. XELODA [Interacting]
     Dosage: DOSAGE REGIMEN: 2 OUT OF 3 WEEKS.
     Route: 048
     Dates: start: 20081229, end: 20090109
  2. ENALAPRIL MALEATE [Interacting]
     Indication: DRUG USE FOR UNKNOWN INDICATION
     Dosage: DOSAGE REGIMEN: DAILY
     Route: 048
     Dates: end: 20090115
  3. TILDIEM [Suspect]
     Indication: DRUG USE FOR UNKNOWN INDICATION
     Dosage: FREQUENCY: QD
     Route: 048
  4. VERAPAMIL [Concomitant]
     Dosage: FREQUENCY: QD
     Route: 048

REACTIONS (2)
  - ANGIOEDEMA [None]
  - DRUG INTERACTION [None]
